FAERS Safety Report 17163245 (Version 1)
Quarter: 2019Q4

REPORT INFORMATION
  Report Type: Spontaneous
  Country: SI (occurrence: SI)
  Receive Date: 20191217
  Receipt Date: 20191217
  Transmission Date: 20200122
  Serious: Yes (Other)
  Sender: FDA-Public Use
  Company Number: SI-ACCORD-165188

PATIENT
  Age: 50 Year
  Sex: Male

DRUGS (1)
  1. TACROLIMUS. [Suspect]
     Active Substance: TACROLIMUS
     Indication: RENAL TRANSPLANT
     Route: 065

REACTIONS (4)
  - Blood creatine increased [Unknown]
  - Capillaritis [Unknown]
  - Arteritis [Unknown]
  - Glomerulonephritis [Unknown]
